FAERS Safety Report 4976160-0 (Version None)
Quarter: 2006Q2

REPORT INFORMATION
  Report Type: 
  Country: None (occurrence: None)
  Receive Date: 20060410
  Receipt Date: 20051228
  Transmission Date: 20061013
  Serious: Yes (Death, Life-Threatening, Disabling)
  Sender: FDA-Public Use
  Company Number: 2005-136308-NL

PATIENT
  Age: 80 Year
  Sex: Male

DRUGS (12)
  1. DANAPAROID SODIUM [Suspect]
     Indication: DISSEMINATED INTRAVASCULAR COAGULATION
     Route: 042
     Dates: start: 20050322, end: 20050331
  2. PLASMA PROTEIN FRACTION (HUMAN) [Concomitant]
  3. SULPERAZON [Concomitant]
  4. PREDNISOLONE ACETATE OPHTHALMIC SUSPENSION/DROPS [Concomitant]
  5. AZASETRON HYDROCHLORIDE [Concomitant]
  6. PIRARUBICIN [Concomitant]
  7. VINCRISTINE SULFATE [Concomitant]
  8. CYCLOPHOSPHAMIDE [Concomitant]
  9. CARBENIN [Concomitant]
  10. LENOGRASTIM [Concomitant]
  11. ALBUMIN (HUMAN) [Concomitant]
  12. MENATETRENONE [Concomitant]

REACTIONS (4)
  - ANAEMIA [None]
  - BLOOD UREA INCREASED [None]
  - JAUNDICE [None]
  - WHITE BLOOD CELL COUNT DECREASED [None]
